FAERS Safety Report 6201619-8 (Version None)
Quarter: 2009Q2

REPORT INFORMATION
  Report Type: 
  Country: None (occurrence: None)
  Receive Date: 20090519
  Receipt Date: 20090508
  Transmission Date: 20091009
  Serious: Yes (Hospitalization)
  Sender: FDA-Public Use
  Company Number: THYM-10850

PATIENT
  Age: 45 Year
  Sex: Female
  Weight: 71.7 kg

DRUGS (23)
  1. ANTI-THYMOCYTE GLOBULIN RABBIT NOS [Suspect]
     Indication: LIVER TRANSPLANT
     Dosage: 108 MG, QD, INTRAVENOUS
     Route: 042
     Dates: start: 20051231, end: 20060103
  2. ANTI-THYMOCYTE GLOBULIN RABBIT NOS [Suspect]
  3. MYCOPHENOLATE MOFETIL [Concomitant]
  4. PEPCID [Concomitant]
  5. ACYCLOVIR [Concomitant]
  6. TACROLIMUS [Concomitant]
  7. INSULIN ASPART (INSULIN ASPART) [Concomitant]
  8. INSULIN GLARGINE (INSULIN GLARGINE) [Concomitant]
  9. ANZEMET [Concomitant]
  10. MYCOSTATIN [Concomitant]
  11. BENADRYL [Concomitant]
  12. HEPARIN [Concomitant]
  13. NYSTATIN [Concomitant]
  14. VANCOMYCIN [Concomitant]
  15. IMIPENEM AND CILASTATIN SODIUM [Concomitant]
  16. PHENEGRAN (PROMETHAZINE) [Concomitant]
  17. DIFLUCAN [Concomitant]
  18. SODIUM CHLORIDE [Concomitant]
  19. PREDNISONE TAB [Concomitant]
  20. BACTRIM [Concomitant]
  21. VALCYTE [Concomitant]
  22. FUROSEMIDE [Concomitant]
  23. INSULIN (INSULIN) [Concomitant]

REACTIONS (6)
  - INCISION SITE CELLULITIS [None]
  - PARAESTHESIA [None]
  - PERITONEAL EFFUSION [None]
  - PRURITUS [None]
  - RENAL FAILURE ACUTE [None]
  - SERUM SICKNESS [None]
